FAERS Safety Report 21919218 (Version 1)
Quarter: 2023Q1

REPORT INFORMATION
  Report Type: Spontaneous
  Country: US (occurrence: US)
  Receive Date: 20230127
  Receipt Date: 20230127
  Transmission Date: 20230418
  Serious: No
  Sender: FDA-Public Use
  Company Number: US-BIOGEN-2022BI01089054

PATIENT
  Sex: Female

DRUGS (2)
  1. TECFIDERA [Suspect]
     Active Substance: DIMETHYL FUMARATE
     Indication: Multiple sclerosis
     Dosage: FOR 7 DAYS
     Route: 050
     Dates: start: 20211215, end: 20211221
  2. TECFIDERA [Suspect]
     Active Substance: DIMETHYL FUMARATE
     Route: 050
     Dates: start: 20211222

REACTIONS (7)
  - Gastric disorder [Unknown]
  - Flushing [Unknown]
  - Nausea [Unknown]
  - Rash [Unknown]
  - Swollen tongue [Unknown]
  - Hot flush [Unknown]
  - Pruritus [Recovered/Resolved]
